FAERS Safety Report 7133448-5 (Version None)
Quarter: 2010Q4

REPORT INFORMATION
  Report Type: 
  Country: None (occurrence: None)
  Receive Date: 20101202
  Receipt Date: 20101122
  Transmission Date: 20110411
  Serious: Yes (Other)
  Sender: FDA-Public Use
  Company Number: DE-WATSON-2010-15275

PATIENT
  Age: 67 Year
  Sex: Male

DRUGS (1)
  1. KENTERA (WATSON LABORATORIES) [Suspect]
     Indication: PRODUCT USED FOR UNKNOWN INDICATION
     Dosage: ^2 X WEEK^
     Route: 062
     Dates: start: 20101020

REACTIONS (3)
  - ASTHENIA [None]
  - FATIGUE [None]
  - HEART RATE DECREASED [None]
